FAERS Safety Report 19270400 (Version 2)
Quarter: 2021Q2

REPORT INFORMATION
  Report Type: Spontaneous
  Country: US (occurrence: US)
  Receive Date: 20210518
  Receipt Date: 20210624
  Transmission Date: 20210717
  Serious: Yes (Hospitalization)
  Sender: FDA-Public Use
  Company Number: US-PFIZER INC-2021508428

PATIENT
  Age: 76 Year
  Sex: Female

DRUGS (4)
  1. ALLOPURINOL. [Concomitant]
     Active Substance: ALLOPURINOL
     Dosage: UNK
     Dates: start: 201906
  2. AMLODIPINE BESILATE [Suspect]
     Active Substance: AMLODIPINE BESYLATE
     Indication: HYPERTENSION
     Dosage: 10 MG, DAILY
     Dates: start: 2016, end: 20210514
  3. LOSARTAN. [Concomitant]
     Active Substance: LOSARTAN
     Dosage: UNK
     Dates: start: 20210313
  4. OMEGA 3 FISH OIL [FISH OIL] [Concomitant]
     Dosage: UNK
     Dates: start: 2018

REACTIONS (4)
  - Drug ineffective [Unknown]
  - Pain [Unknown]
  - Muscle spasms [Unknown]
  - Malaise [Not Recovered/Not Resolved]
